FAERS Safety Report 8803595 (Version 7)
Quarter: 2015Q3

REPORT INFORMATION
  Report Type: Spontaneous
  Country: US (occurrence: US)
  Receive Date: 20120924
  Receipt Date: 20150702
  Transmission Date: 20151125
  Serious: Yes (Hospitalization, Other)
  Sender: FDA-Public Use
  Company Number: US-009507513-1209USA005902

PATIENT
  Sex: Female
  Weight: 82.99 kg

DRUGS (5)
  1. FOSAMAX [Suspect]
     Active Substance: ALENDRONATE SODIUM
     Indication: PROPHYLAXIS
  2. FOSAMAX [Suspect]
     Active Substance: ALENDRONATE SODIUM
     Indication: OSTEOPOROSIS
     Dosage: 70 MG, QW
     Route: 048
     Dates: start: 1995, end: 2007
  3. ALENDRONATE SODIUM. [Suspect]
     Active Substance: ALENDRONATE SODIUM
     Dosage: 70 MG, QW
     Route: 048
     Dates: start: 20081218, end: 20120412
  4. METFORMIN [Concomitant]
     Active Substance: METFORMIN HYDROCHLORIDE
     Indication: DIABETES MELLITUS
     Dosage: UNK
     Dates: start: 1994
  5. CALCIUM (UNSPECIFIED) [Concomitant]
     Active Substance: CALCIUM
     Dosage: UNK
     Dates: start: 1990

REACTIONS (30)
  - Femur fracture [Recovering/Resolving]
  - Low turnover osteopathy [Unknown]
  - Diabetic retinopathy [Unknown]
  - Hypothyroidism [Unknown]
  - Post herpetic neuralgia [Unknown]
  - Intraocular lens implant [Unknown]
  - Viral infection [Unknown]
  - Haemorrhagic anaemia [Unknown]
  - Open reduction of fracture [Unknown]
  - Squamous cell carcinoma [Unknown]
  - Actinic keratosis [Unknown]
  - Aortic arteriosclerosis [Unknown]
  - Spinal osteoarthritis [Unknown]
  - Hepatic enzyme abnormal [Unknown]
  - Ankle fracture [Unknown]
  - Gastrooesophageal reflux disease [Unknown]
  - Fall [Unknown]
  - Osteoarthritis [Unknown]
  - Vertigo positional [Unknown]
  - Fatigue [Unknown]
  - Retinal haemorrhage [Unknown]
  - Arthralgia [Unknown]
  - Cancer surgery [Unknown]
  - Cataract [Unknown]
  - Tonsillectomy [Unknown]
  - Vitritis [Unknown]
  - Vision blurred [Unknown]
  - Diabetic eye disease [Unknown]
  - Eczema [Unknown]
  - Acute sinusitis [Unknown]

NARRATIVE: CASE EVENT DATE: 20060228
